FAERS Safety Report 4281523-5 (Version None)
Quarter: 2004Q1

REPORT INFORMATION
  Report Type: 
  Country: None (occurrence: None)
  Receive Date: 20040112
  Receipt Date: 20031006
  Transmission Date: 20041129
  Serious: Yes (Other)
  Sender: FDA-Public Use
  Company Number: 342048

PATIENT
  Age: 42 Year
  Sex: Male
  Weight: 81.2 kg

DRUGS (11)
  1. FUZEON [Suspect]
     Indication: DRUG USE FOR UNKNOWN INDICATION
     Dosage: 90MG 2 PER DAY SUBCUTANEOUS
     Route: 058
     Dates: start: 20030702
  2. FORTOVASE [Suspect]
     Indication: DRUG USE FOR UNKNOWN INDICATION
     Dosage: 4 DOSE FORM DAILY
     Dates: start: 20030702
  3. KLONOPIN [Concomitant]
  4. LITHIUM (LITHIUM NOS) [Concomitant]
  5. DAPSONE [Concomitant]
  6. MELATONIN (MELATONIN) [Concomitant]
  7. TENOFOVIR DISOPROXYL FUMARATE (TENOFOVIR) [Concomitant]
  8. KALETRA [Concomitant]
  9. RESCRIPTOR [Concomitant]
  10. PREVACID [Concomitant]
  11. AMBIEN [Concomitant]

REACTIONS (31)
  - ALANINE AMINOTRANSFERASE INCREASED [None]
  - ANAEMIA [None]
  - ANXIETY [None]
  - ASPARTATE AMINOTRANSFERASE INCREASED [None]
  - ASTHENIA [None]
  - BODY TEMPERATURE INCREASED [None]
  - DIZZINESS [None]
  - DYSPNOEA [None]
  - FALL [None]
  - GINGIVITIS [None]
  - HERPES SIMPLEX [None]
  - INJECTION SITE PRURITUS [None]
  - INJECTION SITE REACTION [None]
  - INSOMNIA [None]
  - INTENTIONAL SELF-INJURY [None]
  - LEUKOPLAKIA [None]
  - LIMB INJURY [None]
  - LYMPHADENOPATHY [None]
  - MANIA [None]
  - MEDICATION ERROR [None]
  - NIGHT SWEATS [None]
  - NO ADVERSE EFFECT [None]
  - PENILE ULCERATION [None]
  - PENIS DISORDER [None]
  - PLATELET COUNT DECREASED [None]
  - PRURITUS [None]
  - RED BLOOD CELL COUNT DECREASED [None]
  - SUNBURN [None]
  - T-LYMPHOCYTE COUNT DECREASED [None]
  - VIRAL LOAD DECREASED [None]
  - WHITE BLOOD CELL COUNT DECREASED [None]
